FAERS Safety Report 4648339-9 (Version None)
Quarter: 2005Q2

REPORT INFORMATION
  Report Type: 
  Country: None (occurrence: None)
  Receive Date: 20050427
  Receipt Date: 20050419
  Transmission Date: 20051028
  Serious: Yes (Other)
  Sender: FDA-Public Use
  Company Number: HQWYE130119APR05

PATIENT
  Age: 65 Year
  Sex: Female

DRUGS (1)
  1. AMIODARONE HCL [Suspect]
     Indication: TACHYCARDIA
     Dosage: 0.6 G 1X PER 1 DAY, INTRAVENOUS
     Route: 042

REACTIONS (1)
  - ALVEOLITIS ALLERGIC [None]
